FAERS Safety Report 17186867 (Version 1)
Quarter: 2019Q4

REPORT INFORMATION
  Report Type: Spontaneous
  Country: FI (occurrence: FI)
  Receive Date: 20191220
  Receipt Date: 20191220
  Transmission Date: 20200122
  Serious: Yes (Death)
  Sender: FDA-Public Use
  Company Number: FI-ELI_LILLY_AND_COMPANY-FI201912010707

PATIENT
  Sex: Male

DRUGS (3)
  1. IRINOTECAN [Concomitant]
     Active Substance: IRINOTECAN
     Indication: GASTROINTESTINAL CARCINOMA
     Dosage: UNK, UNKNOWN
     Route: 065
  2. FLUOROURACIL. [Concomitant]
     Active Substance: FLUOROURACIL
     Indication: GASTROINTESTINAL CARCINOMA
     Dosage: UNK, UNKNOWN
     Route: 065
  3. CYRAMZA [Suspect]
     Active Substance: RAMUCIRUMAB
     Indication: GASTROINTESTINAL CARCINOMA
     Dosage: UNK, UNKNOWN
     Route: 065

REACTIONS (1)
  - Death [Fatal]
